FAERS Safety Report 4596317-0 (Version None)
Quarter: 2005Q1

REPORT INFORMATION
  Report Type: 
  Country: None (occurrence: None)
  Receive Date: 20050224
  Receipt Date: 20050210
  Transmission Date: 20050727
  Serious: No
  Sender: FDA-Public Use
  Company Number: 2005AP00392

PATIENT
  Age: 70 Year
  Sex: Female

DRUGS (5)
  1. IRESSA [Suspect]
     Indication: LUNG ADENOCARCINOMA
     Dosage: 250 MG DAILY PO
     Route: 048
     Dates: start: 20041103, end: 20041220
  2. CODEINE PHOSPHATE [Concomitant]
  3. MAGNESIUM OXIDE [Concomitant]
  4. PREDNISOLONE [Concomitant]
  5. GASTER D [Concomitant]

REACTIONS (3)
  - ANOREXIA [None]
  - BRAIN HERNIATION [None]
  - CYSTITIS HAEMORRHAGIC [None]
